FAERS Safety Report 5730986-4 (Version None)
Quarter: 2008Q2

REPORT INFORMATION
  Report Type: 
  Country: None (occurrence: None)
  Receive Date: 20080505
  Receipt Date: 20080418
  Transmission Date: 20081010
  Serious: Yes (Hospitalization)
  Sender: FDA-Public Use
  Company Number: 2008-02769

PATIENT
  Age: 71 Year
  Sex: Male

DRUGS (1)
  1. FORTAMET [Suspect]
     Dosage: ORAL
     Route: 048
     Dates: start: 20080101

REACTIONS (2)
  - LACTIC ACIDOSIS [None]
  - RENAL FAILURE ACUTE [None]
